FAERS Safety Report 5192374-1 (Version None)
Quarter: 2006Q4

REPORT INFORMATION
  Report Type: 
  Country: None (occurrence: None)
  Receive Date: 20061227
  Receipt Date: 20061215
  Transmission Date: 20070319
  Serious: Yes (Other)
  Sender: FDA-Public Use
  Company Number: JP-PFIZER INC-2006154450

PATIENT
  Age: 78 Year
  Sex: Female

DRUGS (3)
  1. CYTOTEC [Suspect]
     Indication: GASTRIC ULCER HAEMORRHAGE
     Route: 048
     Dates: start: 20061206, end: 20061210
  2. ADALAT [Concomitant]
     Route: 048
     Dates: start: 20061206, end: 20061210
  3. PARIET [Concomitant]
     Route: 048
     Dates: start: 20061206, end: 20061210

REACTIONS (1)
  - ERYTHEMA MULTIFORME [None]
